FAERS Safety Report 17100875 (Version 5)
Quarter: 2020Q1

REPORT INFORMATION
  Report Type: Spontaneous
  Country: US (occurrence: US)
  Receive Date: 20191202
  Receipt Date: 20200212
  Transmission Date: 20200409
  Serious: Yes (Hospitalization, Other)
  Sender: FDA-Public Use
  Company Number: US-SA-2019SA330094

PATIENT
  Age: 58 Year
  Sex: Male

DRUGS (3)
  1. ZYRTEC [Concomitant]
     Active Substance: CETIRIZINE HYDROCHLORIDE
     Indication: PRURITUS
     Dosage: 10 MG, QD
     Route: 048
  2. DUPIXENT [Suspect]
     Active Substance: DUPILUMAB
     Indication: DERMATITIS ATOPIC
     Dosage: 300 MG, QOW
     Route: 058
     Dates: start: 20191105, end: 2019
  3. IVERMECTIN. [Suspect]
     Active Substance: IVERMECTIN
     Dosage: UNK
     Dates: start: 20191208

REACTIONS (11)
  - Skin discolouration [Not Recovered/Not Resolved]
  - Lip swelling [Recovering/Resolving]
  - Pruritus [Recovering/Resolving]
  - Angioedema [Recovered/Resolved]
  - Anaphylactic shock [Recovering/Resolving]
  - Skin fissures [Not Recovered/Not Resolved]
  - Pharyngeal swelling [Recovering/Resolving]
  - Skin exfoliation [Unknown]
  - Peripheral swelling [Not Recovered/Not Resolved]
  - Swollen tongue [Recovering/Resolving]
  - Drug ineffective [Recovering/Resolving]

NARRATIVE: CASE EVENT DATE: 20191110
